FAERS Safety Report 4070348 (Version 4)
Quarter: 2012Q4

REPORT INFORMATION
  Report Type: 
  Country: JP (occurrence: US)
  Receive Date: 20031126
  Receipt Date: 20120927
  Transmission Date: 20130627
  Serious: Yes (Disabling)
  Sender: FDA-Public Use
  Company Number: US-JNJFOC-20030706001

PATIENT
  Age: 64 None
  Sex: Female
  Weight: 73.48 kg

DRUGS (5)
  1. LEVAQUIN [Suspect]
     Indication: ASTHMA
     Route: 048
     Dates: start: 20030703, end: 20030712
  2. LEVAQUIN [Suspect]
     Indication: SINUSITIS
     Route: 048
     Dates: start: 20030703, end: 20030712
  3. ZYRTEC-D [Concomitant]
     Indication: SINUSITIS
  4. NASONEX [Concomitant]
  5. ADVAIR DISKUS [Concomitant]
     Route: 055

REACTIONS (2)
  - Tendon rupture [Recovering/Resolving]
  - Tenosynovitis [Unknown]
